FAERS Safety Report 22278291 (Version 2)
Quarter: 2023Q2

REPORT INFORMATION
  Report Type: Spontaneous
  Country: CO (occurrence: CO)
  Receive Date: 20230503
  Receipt Date: 20230517
  Transmission Date: 20230721
  Serious: Yes (Hospitalization, Other)
  Sender: FDA-Public Use
  Company Number: CO-GLAXOSMITHKLINE-CO2023AMR062194

PATIENT

DRUGS (5)
  1. MEPOLIZUMAB [Suspect]
     Active Substance: MEPOLIZUMAB
     Indication: Asthma
     Dosage: 100 MG, Z (EVERY 28 DAYS)
     Dates: start: 20191213
  2. PREDNISOLONE [Suspect]
     Active Substance: PREDNISOLONE
     Indication: Respiratory symptom
     Dosage: UNK
  3. MONTELUKAST [Concomitant]
     Active Substance: MONTELUKAST SODIUM
     Indication: Product used for unknown indication
     Dosage: 10 MG, QD
  4. AEROVIAL [Concomitant]
     Indication: Product used for unknown indication
     Dosage: 1 PUFF(S), BID (DRY POWDER 1 BLISTER EVERY 12 HOURS)
  5. ALBUTEROL [Concomitant]
     Active Substance: ALBUTEROL
     Indication: Asthmatic crisis
     Dosage: UNK (RESCUE IN CASE OF ASTHMATIC CRISIS)

REACTIONS (4)
  - Pneumonia [Recovering/Resolving]
  - Asthmatic crisis [Unknown]
  - Respiratory symptom [Not Recovered/Not Resolved]
  - Dyspnoea [Unknown]

NARRATIVE: CASE EVENT DATE: 20230322
